FAERS Safety Report 21746656 (Version 1)
Quarter: 2022Q4

REPORT INFORMATION
  Report Type: Report from Study
  Country: US (occurrence: US)
  Receive Date: 20221219
  Receipt Date: 20221219
  Transmission Date: 20230112
  Serious: No
  Sender: FDA-Public Use
  Company Number: US-ABBVIE-4197133

PATIENT
  Sex: Male

DRUGS (3)
  1. SKYRIZI [Suspect]
     Active Substance: RISANKIZUMAB-RZAA
     Indication: Psoriatic arthropathy
     Dosage: WEEK 0,WEEK 4 THEN EVERY 12 WEEKS THEREATER
     Route: 058
     Dates: start: 20220806
  2. VITAMINS [Concomitant]
     Active Substance: VITAMINS
     Indication: Product used for unknown indication
  3. MODERNA [Concomitant]
     Indication: COVID-19 immunisation

REACTIONS (2)
  - Therapeutic response shortened [Unknown]
  - Pruritus [Unknown]
